FAERS Safety Report 7238822-4 (Version None)
Quarter: 2011Q1

REPORT INFORMATION
  Report Type: 
  Country: None (occurrence: None)
  Receive Date: 20110121
  Receipt Date: 20110110
  Transmission Date: 20110831
  Serious: Yes (Other)
  Sender: FDA-Public Use
  Company Number: PHHY2011US02063

PATIENT
  Sex: Female

DRUGS (4)
  1. LEVOTHYROXINE [Concomitant]
  2. EXFORGE HCT [Suspect]
     Dosage: 1 DF, QD
     Route: 048
  3. RESVERATORL [Concomitant]
  4. ESTER-C [Concomitant]

REACTIONS (7)
  - MUSCULAR WEAKNESS [None]
  - BLOOD PRESSURE DECREASED [None]
  - FIBROMYALGIA [None]
  - THYROID DISORDER [None]
  - FATIGUE [None]
  - ERUCTATION [None]
  - HEPATITIS C [None]
